FAERS Safety Report 9722778 (Version 1)
Quarter: 2013Q4

REPORT INFORMATION
  Report Type: Spontaneous
  Country: DE (occurrence: DE)
  Receive Date: 20131202
  Receipt Date: 20131202
  Transmission Date: 20140711
  Serious: Yes (Congenital Anomaly, Other)
  Sender: FDA-Public Use
  Company Number: DE-DRREDDYS-GER/GER/13/0035918

PATIENT
  Age: 1 Day
  Sex: Female
  Weight: 1.91 kg

DRUGS (1)
  1. CITALOPRAM [Suspect]
     Indication: DEPRESSION
     Route: 064

REACTIONS (6)
  - Atrial septal defect [Recovering/Resolving]
  - Patent ductus arteriosus [Recovering/Resolving]
  - Ventricular septal defect [Recovering/Resolving]
  - Small for dates baby [Recovered/Resolved]
  - Feeding disorder neonatal [Unknown]
  - Foetal exposure during pregnancy [Unknown]
